FAERS Safety Report 9289396 (Version 1)
Quarter: 2013Q2

REPORT INFORMATION
  Report Type: Spontaneous
  Country: US (occurrence: US)
  Receive Date: 20130514
  Receipt Date: 20130514
  Transmission Date: 20140414
  Serious: No
  Sender: FDA-Public Use
  Company Number: US-009507513-1305USA006223

PATIENT
  Age: 40 Year
  Sex: Female

DRUGS (2)
  1. SAPHRIS [Suspect]
     Indication: BIPOLAR DISORDER
     Dosage: TWO 10 MG TABLETS TAKEN TOGETHER AT NIGHT
     Route: 060
  2. SAPHRIS [Suspect]
     Dosage: ONE 10 MG TABLET TAKEN IN THE MORNING AND TWO 10 MG TABLETS TAKEN TOGETHER AT NIGHT

REACTIONS (3)
  - Prescribed overdose [Unknown]
  - Therapeutic response decreased [Unknown]
  - Off label use [Unknown]
